FAERS Safety Report 7466915-5 (Version None)
Quarter: 2011Q2

REPORT INFORMATION
  Report Type: 
  Country: None (occurrence: None)
  Receive Date: 20110505
  Receipt Date: 20110505
  Transmission Date: 20111010
  Serious: Yes (Hospitalization)
  Sender: FDA-Public Use
  Company Number: None

PATIENT
  Age: 59 Year
  Sex: Male
  Weight: 72 kg

DRUGS (1)
  1. ASPIRIN [Suspect]
     Indication: PAIN
     Dosage: 1950 MG EVERY DAY PO
     Route: 048
     Dates: start: 20110316, end: 20110322

REACTIONS (5)
  - ANAEMIA [None]
  - GASTRIC HAEMORRHAGE [None]
  - MYALGIA [None]
  - ASTHENIA [None]
  - DUODENAL ULCER [None]
